FAERS Safety Report 8350911-X (Version None)
Quarter: 2012Q2

REPORT INFORMATION
  Report Type: 
  Country: None (occurrence: None)
  Receive Date: 20120510
  Receipt Date: 20120504
  Transmission Date: 20120825
  Serious: Yes (Hospitalization)
  Sender: FDA-Public Use
  Company Number: FR-PFIZER INC-2012103156

PATIENT
  Age: 48 Year
  Sex: Male

DRUGS (3)
  1. DEBRIDAT [Suspect]
     Dosage: 100 MG, 3X/DAY
     Route: 048
     Dates: start: 20120122
  2. LEVOTHYROXINE SODIUM [Concomitant]
     Indication: HYPOTHYROIDISM
     Route: 048
  3. IBUPROFEN [Suspect]
     Dosage: 400 MG, 3X/DAY
     Route: 048
     Dates: start: 20120122

REACTIONS (5)
  - PROTHROMBIN TIME SHORTENED [None]
  - BLOOD ALKALINE PHOSPHATASE INCREASED [None]
  - GAMMA-GLUTAMYLTRANSFERASE INCREASED [None]
  - TRANSAMINASES INCREASED [None]
  - BLOOD BILIRUBIN INCREASED [None]
